FAERS Safety Report 20097886 (Version 3)
Quarter: 2021Q4

REPORT INFORMATION
  Report Type: Report from Study
  Country: BR (occurrence: None)
  Receive Date: 20211122
  Receipt Date: 20211208
  Transmission Date: 20220304
  Serious: Yes (Hospitalization)
  Sender: FDA-Public Use
  Company Number: BR-ROCHE-2958573

PATIENT
  Age: 67 Year
  Sex: Female
  Weight: 74.6 kg

DRUGS (8)
  1. ATEZOLIZUMAB [Suspect]
     Active Substance: ATEZOLIZUMAB
     Indication: Triple negative breast cancer
     Dosage: START DATE OF MOST RECENT DOSE OF STUDY DRUG (1680 MG ) PRIOR TO SAE 22-OCT-2021.
     Route: 042
     Dates: start: 20211022
  2. TIRAGOLUMAB [Suspect]
     Active Substance: TIRAGOLUMAB
     Indication: Triple negative breast cancer
     Dosage: START DATE OF MOST RECENT DOSE OF STUDY DRUG (840 MG ) PRIOR TO SAE 22-OCT-2021
     Route: 042
     Dates: start: 20211022
  3. PACLITAXEL [Suspect]
     Active Substance: PACLITAXEL
     Indication: Triple negative breast cancer
     Dosage: START DATE OF MOST RECENT DOSE OF STUDY DRUG ( 100 MG) PRIOR TO SAE 05-NOV-2021, START DATE OF MOST
     Route: 042
     Dates: start: 20211022
  4. PALONOSETRON [Concomitant]
     Active Substance: PALONOSETRON
     Route: 042
     Dates: start: 20211022, end: 20211022
  5. PALONOSETRON [Concomitant]
     Active Substance: PALONOSETRON
     Dates: start: 20211029, end: 20211029
  6. PALONOSETRON [Concomitant]
     Active Substance: PALONOSETRON
     Dates: start: 20211105, end: 20211105
  7. PALONOSETRON [Concomitant]
     Active Substance: PALONOSETRON
     Dates: start: 20211126, end: 20211126
  8. LOSARTAN [Concomitant]
     Active Substance: LOSARTAN
     Indication: Hypertension
     Dates: start: 201001

REACTIONS (1)
  - Cellulite [Recovering/Resolving]

NARRATIVE: CASE EVENT DATE: 20211112
